FAERS Safety Report 5140170-3 (Version None)
Quarter: 2006Q4

REPORT INFORMATION
  Report Type: 
  Country: None (occurrence: None)
  Receive Date: 20061024
  Receipt Date: 20061004
  Transmission Date: 20070319
  Serious: Yes (Hospitalization, Other)
  Sender: FDA-Public Use
  Company Number: US200610000922

PATIENT
  Age: 74 Year
  Sex: Female

DRUGS (7)
  1. HUMALOG [Suspect]
     Indication: DIABETES MELLITUS
     Dosage: SUBCUTANEOUS
     Route: 058
     Dates: start: 20030101
  2. HUMALOG [Suspect]
  3. HUMALOG [Suspect]
  4. HUMALOG [Suspect]
  5. HUMALOG [Suspect]
  6. HUMULIN 70/30 [Suspect]
     Indication: DIABETES MELLITUS
     Dosage: SUBCUTANEOUS
     Route: 058
  7. HUMALOG PEN (HUMALOG PEN) [Concomitant]

REACTIONS (5)
  - BRONCHITIS ACUTE [None]
  - CARPAL TUNNEL SYNDROME [None]
  - EXPIRED DRUG ADMINISTERED [None]
  - LUNG DISORDER [None]
  - PHARMACEUTICAL PRODUCT COMPLAINT [None]
